FAERS Safety Report 11924592 (Version 2)
Quarter: 2016Q1

REPORT INFORMATION
  Report Type: Spontaneous
  Country: JP (occurrence: JP)
  Receive Date: 20160118
  Receipt Date: 20160317
  Transmission Date: 20160526
  Serious: Yes (Life-Threatening, Other)
  Sender: FDA-Public Use
  Company Number: JP-GLAXOSMITHKLINE-JP2016JPN003408

PATIENT
  Age: 76 Year
  Sex: Female
  Weight: 48 kg

DRUGS (9)
  1. TRYPTANOL [Concomitant]
     Active Substance: AMITRIPTYLINE
     Dosage: 25 MG, QD
  2. ATORVASTATIN [Concomitant]
     Active Substance: ATORVASTATIN
     Dosage: 10 MG, 1D
  3. ZYPREXA [Concomitant]
     Active Substance: OLANZAPINE
     Dosage: 2.5 MG, QD
  4. PAXIL CR [Concomitant]
     Active Substance: PAROXETINE HYDROCHLORIDE
     Dosage: 12.5 MG, QD
  5. TRAMAL [Concomitant]
     Active Substance: TRAMADOL
     Dosage: 100 MG, 1D
  6. LAMICTAL [Suspect]
     Active Substance: LAMOTRIGINE
     Indication: ANXIETY DISORDER
     Dosage: 25 MG, 1D
     Route: 048
     Dates: start: 20140405
  7. MAGMITT [Concomitant]
     Active Substance: MAGNESIUM OXIDE
     Dosage: 990 MG, 1D
  8. LAMICTAL [Suspect]
     Active Substance: LAMOTRIGINE
     Dosage: 100 MG, 1D
     Route: 048
     Dates: start: 20140412, end: 20140427
  9. POLARAMINE [Concomitant]
     Active Substance: DEXCHLORPHENIRAMINE MALEATE
     Dosage: 2 MG, QD

REACTIONS (17)
  - Erythema [Unknown]
  - Conjunctival hyperaemia [Unknown]
  - Pyrexia [Unknown]
  - Ocular hyperaemia [Unknown]
  - Rash maculo-papular [Unknown]
  - Rash [Unknown]
  - Tongue disorder [Unknown]
  - Renal impairment [Unknown]
  - Lip erosion [Unknown]
  - Lip pain [Unknown]
  - Hepatic function abnormal [Unknown]
  - Erythema of eyelid [Unknown]
  - Oral pain [Unknown]
  - Stevens-Johnson syndrome [Recovered/Resolved]
  - Malaise [Unknown]
  - Inflammation [Unknown]
  - Oral mucosa erosion [Unknown]

NARRATIVE: CASE EVENT DATE: 20140427
